FAERS Safety Report 5851647-7 (Version None)
Quarter: 2008Q3

REPORT INFORMATION
  Report Type: 
  Country: None (occurrence: None)
  Receive Date: 20080820
  Receipt Date: 20080811
  Transmission Date: 20090109
  Serious: Yes (Hospitalization, Other)
  Sender: FDA-Public Use
  Company Number: US-ELI_LILLY_AND_COMPANY-US200808001974

PATIENT
  Age: 51 Year
  Sex: Female

DRUGS (2)
  1. HUMULIN R [Suspect]
     Indication: TYPE 1 DIABETES MELLITUS
     Dosage: UNK, 4/D
  2. LANTUS [Concomitant]
     Indication: TYPE 1 DIABETES MELLITUS
     Dosage: AT BEDTIME

REACTIONS (2)
  - PANCREAS TRANSPLANT REJECTION [None]
  - RENAL FAILURE [None]
